FAERS Safety Report 5181103-3 (Version None)
Quarter: 2006Q4

REPORT INFORMATION
  Report Type: 
  Country: None (occurrence: None)
  Receive Date: 20061220
  Receipt Date: 20020411
  Transmission Date: 20070319
  Serious: Yes (Other)
  Sender: FDA-Public Use
  Company Number: US-AMGEN-US011693

PATIENT
  Sex: Female
  Weight: 61.3 kg

DRUGS (8)
  1. EPOGEN [Suspect]
     Indication: DIALYSIS
     Route: 058
     Dates: start: 19990101, end: 20060101
  2. NEPHRO-VITE [Concomitant]
     Dates: start: 19991001
  3. RENAGEL [Concomitant]
     Dates: start: 20000201
  4. FERROUS SULFATE TAB [Concomitant]
  5. POTASSIUM CHLORIDE [Concomitant]
     Dates: start: 20000413
  6. HECTORAL [Concomitant]
  7. TUMS [Concomitant]
  8. LIPITOR [Concomitant]

REACTIONS (6)
  - ANTI-ERYTHROPOIETIN ANTIBODY POSITIVE [None]
  - APLASIA PURE RED CELL [None]
  - BLOOD PRODUCT TRANSFUSION DEPENDENT [None]
  - DYSFUNCTIONAL UTERINE BLEEDING [None]
  - PERITONITIS [None]
  - STAPHYLOCOCCAL INFECTION [None]
